FAERS Safety Report 8244560-1 (Version None)
Quarter: 2012Q1

REPORT INFORMATION
  Report Type: 
  Country: None (occurrence: None)
  Receive Date: 20120329
  Receipt Date: 20120320
  Transmission Date: 20120608
  Serious: No
  Sender: FDA-Public Use
  Company Number: DE-JNJFOC-20120304765

PATIENT
  Sex: Female
  Weight: 86 kg

DRUGS (4)
  1. METOPROLOL SUCCINATE [Concomitant]
     Indication: PRODUCT USED FOR UNKNOWN INDICATION
     Route: 065
  2. NSAID'S [Concomitant]
     Indication: POST HERPETIC NEURALGIA
     Route: 065
  3. METAMIZOLE [Concomitant]
     Indication: POST HERPETIC NEURALGIA
     Route: 065
  4. TAPENTADOL HYDROCHLORIDE [Suspect]
     Indication: POST HERPETIC NEURALGIA
     Dosage: TWICE A DAY
     Route: 065
     Dates: start: 20111007, end: 20111012

REACTIONS (3)
  - DIARRHOEA [None]
  - DIZZINESS [None]
  - NAUSEA [None]
